FAERS Safety Report 5423649-6 (Version None)
Quarter: 2007Q3

REPORT INFORMATION
  Report Type: 
  Country: None (occurrence: None)
  Receive Date: 20070823
  Receipt Date: 20070816
  Transmission Date: 20080115
  Serious: Yes (Hospitalization)
  Sender: FDA-Public Use
  Company Number: A0657047A

PATIENT
  Age: 49 Year
  Sex: Male

DRUGS (11)
  1. WELLBUTRIN [Suspect]
     Indication: DEPRESSION
     Dosage: 150MG PER DAY
     Route: 048
     Dates: start: 20070417
  2. PEGASYS [Suspect]
     Indication: HEPATITIS C
     Dosage: 45MG PER DAY
     Route: 058
     Dates: start: 20061015, end: 20070511
  3. EFFEXOR [Suspect]
     Indication: DRUG USE FOR UNKNOWN INDICATION
     Dates: start: 20061001, end: 20070415
  4. CELEXA [Suspect]
     Indication: DEPRESSION
  5. OPIATE [Suspect]
  6. BACLOFEN [Suspect]
     Indication: DRUG USE FOR UNKNOWN INDICATION
     Dates: start: 20070417
  7. VOLTAREN [Suspect]
     Route: 065
  8. ZITHROMAX [Concomitant]
  9. HYDROCHLOROTHIAZIDE [Concomitant]
  10. TOPROL-XL [Concomitant]
  11. ANTIBIOTIC [Concomitant]

REACTIONS (27)
  - ABDOMINAL DISCOMFORT [None]
  - ABDOMINAL TENDERNESS [None]
  - ACCIDENTAL OVERDOSE [None]
  - AGGRESSION [None]
  - AGITATION [None]
  - ANXIETY [None]
  - BACK PAIN [None]
  - DELIRIUM [None]
  - DIARRHOEA [None]
  - DRUG INTERACTION [None]
  - FATIGUE [None]
  - HAEMATOCHEZIA [None]
  - HAEMOGLOBIN DECREASED [None]
  - HEPATOMEGALY [None]
  - LEUKOPENIA [None]
  - MENTAL DISORDER [None]
  - MENTAL STATUS CHANGES [None]
  - MOVEMENT DISORDER [None]
  - MUSCLE RIGIDITY [None]
  - NECK PAIN [None]
  - RECTAL HAEMORRHAGE [None]
  - RED BLOOD CELL COUNT DECREASED [None]
  - RESPIRATORY DISTRESS [None]
  - RESTLESSNESS [None]
  - SINUS TACHYCARDIA [None]
  - THROMBOCYTOPENIA [None]
  - TREMOR [None]
